FAERS Safety Report 9221754 (Version 2)
Quarter: 2013Q2

REPORT INFORMATION
  Report Type: Spontaneous
  Country: KR (occurrence: None)
  Receive Date: 20130408
  Receipt Date: 20130423
  Transmission Date: 20140414
  Serious: Yes (Hospitalization)
  Sender: FDA-Public Use
  Company Number: JP-2013-10761

PATIENT
  Age: 69 Year
  Sex: Female
  Weight: 41 kg

DRUGS (10)
  1. OPC-41061 [Suspect]
     Route: 048
     Dates: start: 20130313, end: 20130321
  2. LACTULOSE (LACTULOSE) [Concomitant]
  3. FUROSEMIDE (FUROSEMIDE) [Concomitant]
  4. SILYMARIN (SILYMARIN) [Concomitant]
  5. LIVACT (ISOLEUCINE, LEUCINE, VALINE) [Concomitant]
  6. RIFAXIMIN (RIFAXIMIN) [Concomitant]
  7. PANTOPRAZOLE (PANTOPRAZOLE) [Concomitant]
  8. BIPHENYL DIMETHYL DICARBOXYLATE/GARLIC OIL (BIPHENYL DIMETHYL DICARBOXYLATE/GARLIC OIL) [Concomitant]
  9. TEPRENONE (TEPRENONE) [Concomitant]
  10. SPIRONOLACTONE (SPIRONOLACTONE) [Concomitant]

REACTIONS (1)
  - Hepatic encephalopathy [None]
